FAERS Safety Report 7744563-7 (Version None)
Quarter: 2011Q3

REPORT INFORMATION
  Report Type: 
  Country: None (occurrence: None)
  Receive Date: 20110912
  Receipt Date: 20110908
  Transmission Date: 20111222
  Serious: Yes (Other)
  Sender: FDA-Public Use
  Company Number: US-PFIZER INC-2011211684

PATIENT
  Sex: Female
  Weight: 51.247 kg

DRUGS (2)
  1. NIFEDIPINE [Suspect]
     Indication: HYPERTENSION
     Dosage: UNK
  2. ZESTRIL [Suspect]
     Indication: HYPERTENSION
     Dosage: UNK

REACTIONS (8)
  - PAIN IN EXTREMITY [None]
  - FEELING ABNORMAL [None]
  - MEMORY IMPAIRMENT [None]
  - HYPERSOMNIA [None]
  - HEADACHE [None]
  - GAIT DISTURBANCE [None]
  - CARDIAC DISORDER [None]
  - MALAISE [None]
